FAERS Safety Report 20961471 (Version 1)
Quarter: 2022Q2

REPORT INFORMATION
  Report Type: Report from Study
  Country: IL (occurrence: IL)
  Receive Date: 20220615
  Receipt Date: 20220615
  Transmission Date: 20220721
  Serious: Yes (Other)
  Sender: FDA-Public Use
  Company Number: IL-Accord-265974

PATIENT
  Age: 13 Year
  Sex: Female

DRUGS (4)
  1. METHOTREXATE [Suspect]
     Active Substance: METHOTREXATE
     Indication: Osteosarcoma
     Dosage: 12 G/M2 OVER 4 H WAS GIVEN WITH HYPER-HYDRATION, ALKALINIZATION
  2. CISPLATIN [Concomitant]
     Active Substance: CISPLATIN
     Indication: Osteosarcoma
     Dosage: CISPLATIN AND DOXORUBICIN WAS FOLLOWED BY TWO COURSES OF HIGH-DOSE MTX WITH A 1-WEEK GAP
  3. DOXORUBICIN [Concomitant]
     Active Substance: DOXORUBICIN
     Indication: Osteosarcoma
     Dosage: CISPLATIN AND DOXORUBICIN WAS FOLLOWED BY TWO COURSES OF HIGH-DOSE MTX WITH A 1-WEEK GAP
  4. LEUCOVORIN [Concomitant]
     Active Substance: LEUCOVORIN
     Indication: Prophylaxis
     Dosage: 15 MG/M2 EVERY 6 H, STARTING 24 H FROM MTX INFUSION AND CONTINUING UNTIL MTX CONCENTRATION WAS LESS

REACTIONS (4)
  - Alanine aminotransferase increased [Unknown]
  - Dysmetria [Recovered/Resolved]
  - Paraesthesia [Recovered/Resolved]
  - Neurotoxicity [Recovered/Resolved]
